FAERS Safety Report 4504310-9 (Version None)
Quarter: 2004Q4

REPORT INFORMATION
  Report Type: 
  Country: None (occurrence: None)
  Receive Date: 20041112
  Receipt Date: 20041112
  Transmission Date: 20050328
  Serious: Yes (Life-Threatening, Hospitalization)
  Sender: FDA-Public Use
  Company Number: None

PATIENT
  Sex: Male
  Weight: 24.1 kg

DRUGS (16)
  1. INTRALIPID 10% [Suspect]
     Indication: MALABSORPTION
     Dosage: 220 ML IV IN TPN
     Route: 042
     Dates: start: 20040422, end: 20040915
  2. INTRALIPID 10% [Suspect]
  3. INTRALIPID 10% [Suspect]
  4. INTRALIPID 10% [Concomitant]
  5. INTRALIPID 10% [Suspect]
  6. INTRALIPID 10% [Suspect]
  7. INTRALIPID 10% [Suspect]
  8. INTRALIPID 10% [Suspect]
  9. .. [Concomitant]
  10. INTRALIPID 10% [Suspect]
  11. INTRALIPID 10% [Suspect]
  12. DEXTROSE [Concomitant]
  13. TRAVASOL 10% [Concomitant]
  14. INTRALLPID [Concomitant]
  15. .. [Concomitant]
  16. K ACETATE [Concomitant]

REACTIONS (11)
  - CATHETER RELATED INFECTION [None]
  - CORNEAL PERFORATION [None]
  - DISSEMINATED INTRAVASCULAR COAGULATION [None]
  - HAEMORRHAGE [None]
  - HEMIPLEGIA [None]
  - LIVER FUNCTION TEST ABNORMAL [None]
  - MYRINGOPLASTY [None]
  - MYRINGOTOMY [None]
  - PYREXIA [None]
  - SEPSIS [None]
  - VIRAL INFECTION [None]
